FAERS Safety Report 7607280-X (Version None)
Quarter: 2011Q3

REPORT INFORMATION
  Report Type: 
  Country: None (occurrence: None)
  Receive Date: 20110713
  Receipt Date: 20110705
  Transmission Date: 20111222
  Serious: Yes (Life-Threatening, Hospitalization)
  Sender: FDA-Public Use
  Company Number: JP-ACTELION-A-CH2011-48582

PATIENT
  Sex: Female
  Weight: 48 kg

DRUGS (16)
  1. TRACLEER [Suspect]
     Dosage: 125 MG, BID
     Route: 048
     Dates: start: 20070307, end: 20110112
  2. DOBUTAMINE HYDROCHLORIDE [Concomitant]
  3. LEVOTHYROXINE SODIUM [Concomitant]
  4. FUROSEMIDE [Concomitant]
  5. OXYGEN [Concomitant]
  6. WARFARIN SODIUM [Concomitant]
  7. OMEPRAZOLE [Concomitant]
  8. ZOLPIDEM [Concomitant]
  9. PIMOBENDAN [Concomitant]
  10. SPIRONOLACTONE [Concomitant]
  11. TRACLEER [Suspect]
     Indication: PULMONARY HYPERTENSION
     Dosage: 125 MG, BID
     Route: 048
     Dates: start: 20110210, end: 20110218
  12. FERROUS SULFATE TAB [Concomitant]
  13. SILDENAFIL CITRATE [Concomitant]
  14. BERAPROST SODIUM [Concomitant]
  15. TRICHLORMETHIAZIDE [Concomitant]
  16. DOPAMINE HYDROCHLORIDE [Concomitant]

REACTIONS (4)
  - WHITE BLOOD CELL COUNT DECREASED [None]
  - NEUTROPHIL COUNT DECREASED [None]
  - CARDIAC FAILURE [None]
  - AGRANULOCYTOSIS [None]
